FAERS Safety Report 4986561-2 (Version None)
Quarter: 2006Q2

REPORT INFORMATION
  Report Type: 
  Country: None (occurrence: None)
  Receive Date: 20060428
  Receipt Date: 20050823
  Transmission Date: 20061013
  Serious: No
  Sender: FDA-Public Use
  Company Number: US-GLAXOSMITHKLINE-A0571437A

PATIENT
  Sex: Female

DRUGS (3)
  1. VENTOLIN [Suspect]
     Indication: ASTHMA
     Route: 055
     Dates: start: 20050819
  2. UNKNOWN MEDICATION [Concomitant]
     Route: 065
  3. ADVAIR DISKUS 100/50 [Concomitant]

REACTIONS (2)
  - DRUG ADMINISTRATION ERROR [None]
  - PHARMACEUTICAL PRODUCT COMPLAINT [None]
